FAERS Safety Report 7191691-3 (Version None)
Quarter: 2010Q4

REPORT INFORMATION
  Report Type: 
  Country: None (occurrence: None)
  Receive Date: 20101221
  Receipt Date: 20101221
  Transmission Date: 20110411
  Serious: No
  Sender: FDA-Public Use
  Company Number: None

PATIENT
  Sex: Female
  Weight: 80.2867 kg

DRUGS (2)
  1. PROPOXYPHENE HCL AND ACETAMINOPHEN [Suspect]
     Indication: BACK DISORDER
     Dosage: 65-650 1 AT NIGHT
  2. PROPOXYPHENE HCL AND ACETAMINOPHEN [Suspect]
     Indication: INTERVERTEBRAL DISC DISORDER
     Dosage: 65-650 1 AT NIGHT

REACTIONS (2)
  - DIZZINESS [None]
  - PALPITATIONS [None]
